FAERS Safety Report 20337887 (Version 4)
Quarter: 2022Q2

REPORT INFORMATION
  Report Type: Spontaneous
  Country: US (occurrence: US)
  Receive Date: 20220114
  Receipt Date: 20220406
  Transmission Date: 20220721
  Serious: No
  Sender: FDA-Public Use
  Company Number: US-SA-SAC20220112000218

PATIENT
  Age: 50 Year
  Sex: Male

DRUGS (8)
  1. DUPIXENT [Suspect]
     Active Substance: DUPILUMAB
     Indication: Dermatitis atopic
     Dosage: 300 MG, QOW
     Route: 058
     Dates: start: 20200810
  2. CYCLOSPORINE [Concomitant]
     Active Substance: CYCLOSPORINE
  3. METHOTREXATE [Concomitant]
     Active Substance: METHOTREXATE
  4. MYCOPHENOLIC ACID [Concomitant]
     Active Substance: MYCOPHENOLIC ACID
  5. TACROLIMUS [Concomitant]
     Active Substance: TACROLIMUS
  6. ZYRTEC [Concomitant]
     Active Substance: CETIRIZINE HYDROCHLORIDE
  7. ELIDEL [Concomitant]
     Active Substance: PIMECROLIMUS
  8. CERAVE ECZEMA CREAMY OIL [Concomitant]

REACTIONS (8)
  - Peripheral coldness [Unknown]
  - Temperature intolerance [Unknown]
  - Headache [Unknown]
  - Lung disorder [Unknown]
  - General physical health deterioration [Unknown]
  - Cough [Unknown]
  - Arthralgia [Unknown]
  - Dermatitis atopic [Unknown]
